FAERS Safety Report 8078136-6 (Version None)
Quarter: 2012Q1

REPORT INFORMATION
  Report Type: 
  Country: None (occurrence: None)
  Receive Date: 20120127
  Receipt Date: 20110131
  Transmission Date: 20120608
  Serious: No
  Sender: FDA-Public Use
  Company Number: US-ABBOTT-10P-163-0689936-00

PATIENT
  Sex: Female
  Weight: 81.72 kg

DRUGS (15)
  1. ESTRADIOL [Concomitant]
     Indication: HORMONE REPLACEMENT THERAPY
     Route: 048
  2. GABAPENTIN [Concomitant]
     Indication: PRODUCT USED FOR UNKNOWN INDICATION
     Route: 048
  3. ANALOG [Concomitant]
     Indication: HYPERTENSION
     Route: 048
  4. BENAZEPRIL HYDROCHLORIDE [Concomitant]
     Indication: SMOKING CESSATION THERAPY
     Route: 048
  5. CITALOPRAM HYDROBROMIDE [Concomitant]
     Indication: ANTIDEPRESSANT THERAPY
     Route: 048
  6. ATENOLOL [Concomitant]
     Indication: HYPERTENSION
  7. HUMIRA [Suspect]
     Indication: RHEUMATOID ARTHRITIS
     Dosage: RECEIVED ONLY TWO INJECTIONS.
     Route: 058
     Dates: start: 20101101
  8. AMLODIPINE [Concomitant]
     Indication: PRODUCT USED FOR UNKNOWN INDICATION
     Route: 048
  9. HYDROCHLOROTHIAZIDE [Concomitant]
     Indication: HYPERTENSION
     Route: 048
  10. CELEBREX [Concomitant]
     Indication: RHEUMATOID ARTHRITIS
     Route: 048
  11. HUMIRA [Suspect]
     Indication: PSORIATIC ARTHROPATHY
  12. SOMA [Concomitant]
     Indication: BACK PAIN
     Dosage: EVERY 2 DAYS OR AS REQUIRED
     Route: 048
  13. LORTAB [Concomitant]
     Indication: RHEUMATOID ARTHRITIS
     Dosage: DAILY
  14. UNKNOWN MEDICATION [Concomitant]
     Indication: HYPERTENSION
  15. CALCIUM [Concomitant]
     Indication: PRODUCT USED FOR UNKNOWN INDICATION

REACTIONS (7)
  - ASTHENIA [None]
  - NIGHT SWEATS [None]
  - PAIN [None]
  - SINUSITIS [None]
  - MALAISE [None]
  - RHINALGIA [None]
  - RENAL PAIN [None]
